FAERS Safety Report 8019599 (Version 4)
Quarter: 2013Q1

REPORT INFORMATION
  Report Type: Spontaneous
  Country: US (occurrence: US)
  Receive Date: 20110704
  Receipt Date: 20130312
  Transmission Date: 20140127
  Serious: Yes (Other)
  Sender: FDA-Public Use
  Company Number: PHHY2011US55058

PATIENT
  Age: 73 Year
  Sex: Male
  Weight: 113.83 kg

DRUGS (17)
  1. GLEEVEC [Suspect]
     Indication: CHRONIC MYELOID LEUKAEMIA
     Dosage: 400 MG, QD
     Route: 048
     Dates: start: 20110522
  2. GLEEVEC [Suspect]
     Dosage: 200 MG, QD
     Route: 047
     Dates: start: 20110602
  3. GLEEVEC [Suspect]
     Dosage: 200 MG, QOD
     Route: 047
  4. GLEEVEC [Suspect]
     Dosage: 400 MG, DAILY
     Route: 048
     Dates: start: 201203
  5. GLEEVEC [Suspect]
     Dosage: 200 MG, UNK
     Route: 048
     Dates: start: 201203
  6. ASA [Concomitant]
     Dosage: 325 MG, DAILY
     Route: 048
  7. LORISTA H (LOSARTAN/HYDROCHLOROTHIAZIDE) [Concomitant]
     Indication: HYPERTENSION
     Dosage: 100/25 MG DAILY
     Route: 048
  8. B12 [Concomitant]
     Dosage: 1000 UG, DAILY
     Route: 048
  9. ACTOS [Concomitant]
     Dosage: 150 MG, DAILY
     Route: 048
  10. CARVEDILOL [Concomitant]
     Dosage: 0.5 DF, DAILY
     Route: 048
  11. PEPTO BISMOL [Concomitant]
     Dosage: UNK UKN, UNK
  12. SPIRONOLACTON [Concomitant]
  13. FUROSEMIDE [Concomitant]
  14. COREG [Concomitant]
  15. KLOR-CON [Concomitant]
  16. COUMADINE [Concomitant]
  17. DIOVAN [Concomitant]

REACTIONS (10)
  - Abdominal discomfort [Recovered/Resolved]
  - Diarrhoea [Not Recovered/Not Resolved]
  - Abdominal pain [Not Recovered/Not Resolved]
  - Abdominal pain upper [Recovering/Resolving]
  - Flatulence [Recovered/Resolved]
  - Arthritis [Not Recovered/Not Resolved]
  - Arthralgia [Unknown]
  - Fatigue [Not Recovered/Not Resolved]
  - Somnolence [Not Recovered/Not Resolved]
  - Dry mouth [Recovered/Resolved]
